FAERS Safety Report 14355682 (Version 1)
Quarter: 2018Q1

REPORT INFORMATION
  Report Type: Spontaneous
  Country: FR (occurrence: FR)
  Receive Date: 20180105
  Receipt Date: 20180105
  Transmission Date: 20180509
  Serious: Yes (Hospitalization, Other)
  Sender: FDA-Public Use
  Company Number: FR-MYLANLABS-2018M1000057

PATIENT
  Age: 50 Year
  Sex: Female
  Weight: 85 kg

DRUGS (5)
  1. PARACETAMOL [Suspect]
     Active Substance: ACETAMINOPHEN
     Indication: PHARYNGEAL INFLAMMATION
     Route: 048
  2. PREDNISOLONE. [Suspect]
     Active Substance: PREDNISOLONE
     Indication: PHARYNGEAL INFLAMMATION
     Route: 048
     Dates: start: 20171106, end: 20171107
  3. MAXILASE [Suspect]
     Active Substance: PANCRELIPASE
     Indication: PHARYNGEAL INFLAMMATION
     Route: 048
  4. HEXASPRAY [Suspect]
     Active Substance: BICLOTYMOL
     Indication: PHARYNGEAL INFLAMMATION
     Route: 049
  5. PIVALONE                           /03009501/ [Suspect]
     Active Substance: NEOMYCIN\POLYMYXIN B\TIXOCORTOL
     Indication: NASAL CONGESTION
     Route: 055

REACTIONS (3)
  - Pleural effusion [Recovering/Resolving]
  - Cellulitis [Recovered/Resolved]
  - Infectious thyroiditis [Recovering/Resolving]

NARRATIVE: CASE EVENT DATE: 20171107
